FAERS Safety Report 6155987-6 (Version None)
Quarter: 2009Q2

REPORT INFORMATION
  Report Type: 
  Country: None (occurrence: None)
  Receive Date: 20090415
  Receipt Date: 20090403
  Transmission Date: 20091009
  Serious: Yes (Other)
  Sender: FDA-Public Use
  Company Number: BE-BRISTOL-MYERS SQUIBB COMPANY-14574172

PATIENT
  Age: 54 Year
  Sex: Female

DRUGS (4)
  1. ABATACEPT [Suspect]
     Indication: CROHN'S DISEASE
     Dates: start: 20080523, end: 20090130
  2. MEDROL [Concomitant]
     Dates: start: 20090226
  3. IMURAN [Concomitant]
     Dates: start: 20090226
  4. DAFALGAN [Concomitant]
     Dates: start: 20090201

REACTIONS (1)
  - CHRONIC LYMPHOCYTIC LEUKAEMIA [None]
